FAERS Safety Report 4441672-5 (Version None)
Quarter: 2004Q3

REPORT INFORMATION
  Report Type: 
  Country: None (occurrence: None)
  Receive Date: 20040903
  Receipt Date: 20040818
  Transmission Date: 20050211
  Serious: Yes (Death)
  Sender: FDA-Public Use
  Company Number: 2004-DE-04436GD

PATIENT
  Age: 34 Year
  Sex: Male

DRUGS (6)
  1. CODEINE (CODEINE) [Suspect]
  2. OLANZAPINE [Suspect]
  3. PHENYTOIN [Suspect]
  4. OXYCODONE (OXYCODONE) [Suspect]
  5. ALPRAZOLAM [Suspect]
  6. CITALOPRAM [Suspect]

REACTIONS (2)
  - ARRHYTHMIA [None]
  - TOXICOLOGIC TEST ABNORMAL [None]
